FAERS Safety Report 9803115 (Version 2)
Quarter: 2014Q1

REPORT INFORMATION
  Report Type: Spontaneous
  Country: US (occurrence: US)
  Receive Date: 20140108
  Receipt Date: 20140205
  Transmission Date: 20141002
  Serious: Yes (Hospitalization)
  Sender: FDA-Public Use
  Company Number: US-SA-2014SA001957

PATIENT
  Age: 80 Year
  Sex: Female
  Weight: 46 kg

DRUGS (2)
  1. HECTOROL [Suspect]
     Indication: HYPERPARATHYROIDISM
     Dosage: ON 22DEC AT 16:13 AND 0N 24 DEC AT 18:14
     Route: 042
     Dates: start: 20131222, end: 20131224
  2. EPOGEN [Concomitant]
     Indication: ANAEMIA
     Dosage: DOSE:6600 UNIT(S)
     Dates: start: 20041025

REACTIONS (1)
  - Unresponsive to stimuli [Recovered/Resolved]
